FAERS Safety Report 5625725-1 (Version None)
Quarter: 2008Q1

REPORT INFORMATION
  Report Type: 
  Country: None (occurrence: None)
  Receive Date: 20080207
  Receipt Date: 20080207
  Transmission Date: 20080703
  Serious: Yes (Hospitalization, Other)
  Sender: FDA-Public Use
  Company Number: None

PATIENT
  Sex: Female

DRUGS (1)
  1. REGLAN [Suspect]
     Indication: SELF-MEDICATION
     Dosage: 10MG  ONCE  PO
     Route: 048
     Dates: start: 20080124, end: 20080124

REACTIONS (3)
  - AMBLYOPIA STRABISMIC [None]
  - DRUG HYPERSENSITIVITY [None]
  - DYSTONIA [None]
